FAERS Safety Report 8558995-0 (Version None)
Quarter: 2012Q3

REPORT INFORMATION
  Report Type: 
  Country: None (occurrence: None)
  Receive Date: 20120802
  Receipt Date: 20120725
  Transmission Date: 20120928
  Serious: Yes (Hospitalization)
  Sender: FDA-Public Use
  Company Number: US-BIOGENIDEC-2012BI016404

PATIENT
  Age: 63 Year
  Sex: Female

DRUGS (1)
  1. TYSABRI [Suspect]
     Indication: MULTIPLE SCLEROSIS
     Route: 042
     Dates: start: 20110921, end: 20120206

REACTIONS (6)
  - MOBILITY DECREASED [None]
  - DRUG SPECIFIC ANTIBODY PRESENT [None]
  - ANKLE FRACTURE [None]
  - MULTIPLE SCLEROSIS RELAPSE [None]
  - FALL [None]
  - LOSS OF CONTROL OF LEGS [None]
